FAERS Safety Report 5094028-9 (Version None)
Quarter: 2006Q3

REPORT INFORMATION
  Report Type: 
  Country: None (occurrence: None)
  Receive Date: 20060829
  Receipt Date: 20060814
  Transmission Date: 20061208
  Serious: Yes (Life-Threatening, Hospitalization)
  Sender: FDA-Public Use
  Company Number: US018129

PATIENT
  Age: 47 Year
  Sex: Male

DRUGS (11)
  1. FENTANYL [Suspect]
  2. ZYVOX [Suspect]
     Indication: STAPHYLOCOCCAL INFECTION
     Dosage: 600 MG BID INTRAVENOUS
     Route: 042
     Dates: start: 20041017, end: 20041020
  3. AMISULPRIDE [Suspect]
  4. ATENOLOL [Suspect]
  5. DOXAZOSIN MESYLATE [Suspect]
  6. HALOPERIDOL [Suspect]
  7. OMEPRAZOLE [Suspect]
  8. PROCYCLIDINE HYDROCHLORIDE 2MG TAB [Suspect]
  9. PANTOPRAZOLE SODIUM [Suspect]
  10. RIFAMPICIN [Suspect]
  11. ZOPICLONE [Suspect]

REACTIONS (3)
  - BLOOD PRESSURE SYSTOLIC INCREASED [None]
  - DRUG INTERACTION [None]
  - HYPERTENSION [None]
